FAERS Safety Report 4371409-X (Version None)
Quarter: 2004Q2

REPORT INFORMATION
  Report Type: 
  Country: None (occurrence: None)
  Receive Date: 20040604
  Receipt Date: 20040520
  Transmission Date: 20050107
  Serious: Yes (Other)
  Sender: FDA-Public Use
  Company Number: 8096

PATIENT
  Age: 65 Year
  Sex: Female

DRUGS (1)
  1. PAMIDRONATE DISODIUM [Suspect]
     Dosage: 15 MG ONCE IV
     Route: 042

REACTIONS (4)
  - BLOOD PARATHYROID HORMONE INCREASED [None]
  - CALCIUM IONISED DECREASED [None]
  - CONDITION AGGRAVATED [None]
  - HYPERPARATHYROIDISM SECONDARY [None]
